FAERS Safety Report 21128212 (Version 1)
Quarter: 2022Q3

REPORT INFORMATION
  Report Type: Spontaneous
  Country: AU (occurrence: AU)
  Receive Date: 20220725
  Receipt Date: 20220725
  Transmission Date: 20221027
  Serious: Yes (Other)
  Sender: FDA-Public Use
  Company Number: AU-ANIPHARMA-2022-AU-000180

PATIENT
  Age: 17 Year
  Sex: Male

DRUGS (5)
  1. FLUOXETINE HYDROCHLORIDE [Suspect]
     Active Substance: FLUOXETINE HYDROCHLORIDE
     Indication: Product used for unknown indication
     Dosage: 20 MG DAILY
  2. CANNABIDIOL [Suspect]
     Active Substance: CANNABIDIOL
     Indication: Autism spectrum disorder
     Dosage: 18 MG TWICE DAILY
     Route: 048
  3. CLONIDINE [Concomitant]
     Active Substance: CLONIDINE
     Dosage: 0.1 MG DAILY
  4. LORATADINE [Concomitant]
     Active Substance: LORATADINE
     Dosage: 10 MG DAILY
  5. RISPERIDONE [Concomitant]
     Active Substance: RISPERIDONE
     Dosage: 0.5 MG TWICE DAILY

REACTIONS (4)
  - Insomnia [Recovered/Resolved]
  - Drug interaction [Recovered/Resolved]
  - Obsessive-compulsive disorder [Recovered/Resolved]
  - Agitation [Recovered/Resolved]
